FAERS Safety Report 16525242 (Version 1)
Quarter: 2019Q3

REPORT INFORMATION
  Report Type: Other
  Country: DE (occurrence: DE)
  Receive Date: 20190703
  Receipt Date: 20190703
  Transmission Date: 20191004
  Serious: Yes (Hospitalization, Other)
  Sender: FDA-Public Use
  Company Number: DE-TOPROL ACQUISITION LLC-2019-TOP-000524

PATIENT
  Sex: Male

DRUGS (13)
  1. ADALAT [Concomitant]
     Active Substance: NIFEDIPINE
     Indication: TOCOLYSIS
     Dosage: UNK
     Route: 064
  2. BETAMETHASONE. [Concomitant]
     Active Substance: BETAMETHASONE
     Indication: MATERNAL THERAPY TO ENHANCE FOETAL LUNG MATURITY
     Dosage: IN WEEK 25+3, 25+4 AND AGAIN IN WEEK 28+0
     Route: 064
     Dates: end: 20140114
  3. FOLIC ACID. [Concomitant]
     Active Substance: FOLIC ACID
     Indication: PROPHYLAXIS OF NEURAL TUBE DEFECT
     Dosage: 0.6 MG, QD
     Route: 064
     Dates: start: 20130702, end: 20131217
  4. PARTUSISTEN [Concomitant]
     Active Substance: FENOTEROL
     Indication: TOCOLYSIS
     Dosage: UNK
     Route: 064
     Dates: start: 20140114, end: 20140114
  5. DEKRISTOL [Concomitant]
     Active Substance: CHOLECALCIFEROL
     Indication: VITAMIN SUPPLEMENTATION
     Dosage: 20000 IU, WEEKLY
     Route: 064
     Dates: start: 20130702, end: 20140114
  6. AMPICILLIN [Concomitant]
     Active Substance: AMPICILLIN
     Indication: ANTIBIOTIC PROPHYLAXIS
     Dosage: UNK
     Route: 064
     Dates: start: 20140114, end: 20140114
  7. AMLODIPINE [Concomitant]
     Active Substance: AMLODIPINE BESYLATE
     Indication: RENAL HYPERTENSION
     Dosage: 7.5 MG, QD
     Route: 064
  8. METOPROLOL SUCCINATE. [Suspect]
     Active Substance: METOPROLOL SUCCINATE
     Indication: RENAL HYPERTENSION
     Dosage: 142.5 MG, QD
     Route: 064
     Dates: start: 20130702, end: 20131217
  9. BELOC-ZOK [Concomitant]
     Active Substance: METOPROLOL SUCCINATE
     Indication: RENAL HYPERTENSION
     Dosage: 70.75 MG, QD
     Route: 064
     Dates: start: 20140114, end: 20140114
  10. THYROXIN [Concomitant]
     Active Substance: LEVOTHYROXINE
     Indication: HYPOTHYROIDISM
     Dosage: 25 UG/INHAL
     Route: 064
     Dates: start: 20130702, end: 20140114
  11. AZATHIOPRINE. [Suspect]
     Active Substance: AZATHIOPRINE
     Indication: PROPHYLAXIS AGAINST TRANSPLANT REJECTION
     Dosage: 100 MG, QD
     Route: 064
     Dates: start: 20130702, end: 20140114
  12. PROGRAFT [Suspect]
     Active Substance: TACROLIMUS
     Indication: PROPHYLAXIS AGAINST TRANSPLANT REJECTION
     Dosage: 5.5 MG, QD
     Route: 064
     Dates: start: 20130702, end: 20140114
  13. DOPEGYT [Suspect]
     Active Substance: METHYLDOPA
     Indication: RENAL HYPERTENSION
     Dosage: 500 MG, QD
     Route: 064
     Dates: start: 20130702, end: 20140114

REACTIONS (3)
  - Maternal exposure during pregnancy [Unknown]
  - Low birth weight baby [Unknown]
  - Premature baby [Unknown]

NARRATIVE: CASE EVENT DATE: 20130702
